FAERS Safety Report 17329833 (Version 1)
Quarter: 2020Q1

REPORT INFORMATION
  Report Type: Spontaneous
  Country: US (occurrence: US)
  Receive Date: 20200127
  Receipt Date: 20200127
  Transmission Date: 20200409
  Serious: Yes (Hospitalization)
  Sender: FDA-Public Use
  Company Number: None

PATIENT
  Sex: Male

DRUGS (6)
  1. TARCEVA [Suspect]
     Active Substance: ERLOTINIB HYDROCHLORIDE
     Indication: LUNG CARCINOMA CELL TYPE UNSPECIFIED STAGE 0
     Dosage: ?          OTHER FREQUENCY:EVERY OTHER DAY;?
     Route: 048
     Dates: start: 20190711
  2. XARELTO [Concomitant]
     Active Substance: RIVAROXABAN
  3. CALCIUM [Concomitant]
     Active Substance: CALCIUM
  4. AVASTIN [Concomitant]
     Active Substance: BEVACIZUMAB
  5. XGEVA [Concomitant]
     Active Substance: DENOSUMAB
  6. VITAMIN D3 [Concomitant]
     Active Substance: CHOLECALCIFEROL

REACTIONS (2)
  - Pancreatic disorder [None]
  - Gastrointestinal disorder [None]
